FAERS Safety Report 5898501-2 (Version None)
Quarter: 2008Q3

REPORT INFORMATION
  Report Type: 
  Country: None (occurrence: None)
  Receive Date: 20080925
  Receipt Date: 20071210
  Transmission Date: 20090109
  Serious: No
  Sender: FDA-Public Use
  Company Number: A0698156A

PATIENT
  Age: 58 Year
  Sex: Female

DRUGS (3)
  1. WELLBUTRIN XL [Suspect]
     Indication: DEPRESSION
     Route: 048
  2. TOPROL-XL [Concomitant]
  3. ASACOL [Concomitant]

REACTIONS (2)
  - ILEOSTOMY [None]
  - MEDICATION RESIDUE [None]
